FAERS Safety Report 7573682-3 (Version None)
Quarter: 2011Q2

REPORT INFORMATION
  Report Type: 
  Country: None (occurrence: None)
  Receive Date: 20110627
  Receipt Date: 20110610
  Transmission Date: 20111010
  Serious: No
  Sender: FDA-Public Use
  Company Number: US-B.I. PHARMACEUTICALS,INC./RIDGEFIELD-2011-BP-15131BP

PATIENT
  Sex: Female

DRUGS (5)
  1. DIGOXIN [Concomitant]
     Dates: start: 20110510
  2. PRADAXA [Suspect]
     Indication: ATRIAL FIBRILLATION
     Dosage: 300 MG
     Route: 048
     Dates: start: 20110601
  3. DILTIAZEM [Concomitant]
     Indication: ATRIAL FIBRILLATION
  4. TOPROL-XL [Concomitant]
     Indication: HYPERTENSION
     Dosage: 100 MG
  5. LASIX [Concomitant]
     Indication: OEDEMA PERIPHERAL
     Dates: start: 20110201

REACTIONS (2)
  - CHEST PAIN [None]
  - OROPHARYNGEAL PAIN [None]
